FAERS Safety Report 5078868-8 (Version None)
Quarter: 2006Q3

REPORT INFORMATION
  Report Type: 
  Country: None (occurrence: None)
  Receive Date: 20060814
  Receipt Date: 20060803
  Transmission Date: 20061208
  Serious: Yes (Hospitalization)
  Sender: FDA-Public Use
  Company Number: PHRM2006FR02272

PATIENT
  Age: 19 Year
  Sex: Female

DRUGS (2)
  1. TEGRETOL [Suspect]
     Indication: EPILEPSY
     Dosage: UNK, UNK
     Route: 048
     Dates: end: 20050821
  2. RUDIVAX [Suspect]
     Dosage: UNK, ONCE/SINGLE
     Route: 030
     Dates: start: 20050926, end: 20050926

REACTIONS (4)
  - DRUG EXPOSURE DURING PREGNANCY [None]
  - FOETAL GROWTH RETARDATION [None]
  - OLIGOHYDRAMNIOS [None]
  - PLACENTAL DISORDER [None]
